FAERS Safety Report 7943073-1 (Version None)
Quarter: 2011Q4

REPORT INFORMATION
  Report Type: 
  Country: None (occurrence: None)
  Receive Date: 20111128
  Receipt Date: 20111118
  Transmission Date: 20120403
  Serious: Yes (Death, Other)
  Sender: FDA-Public Use
  Company Number: US-CELGENEUS-163-21880-11082905

PATIENT
  Sex: Female

DRUGS (29)
  1. CRESTOR [Concomitant]
     Route: 065
  2. ZOMETA [Concomitant]
     Route: 065
  3. ACETAMINOPHEN [Concomitant]
     Route: 065
  4. AMBIEN [Concomitant]
     Route: 065
  5. KLONOPIN [Concomitant]
     Route: 065
  6. LEVAQUIN [Concomitant]
     Route: 065
  7. VITAMIN K TAB [Concomitant]
     Route: 065
  8. ARANESP [Concomitant]
     Route: 065
  9. NYSTATIN [Concomitant]
     Route: 065
  10. VELCADE [Concomitant]
     Route: 065
     Dates: start: 20110120
  11. XOPENEX [Concomitant]
     Route: 065
  12. K-TAB [Concomitant]
     Route: 065
  13. NEXIUM [Concomitant]
     Route: 065
  14. ALBUTEROL [Concomitant]
     Route: 065
  15. LOVAZA [Concomitant]
     Route: 065
  16. VESICARE [Concomitant]
     Route: 065
  17. ATIVAN [Concomitant]
     Route: 065
  18. REVLIMID [Suspect]
     Indication: MULTIPLE MYELOMA
     Dosage: 15 MILLIGRAM
     Route: 048
     Dates: start: 20110215, end: 20110719
  19. PROCHLORPERAZINE MALEATE [Concomitant]
     Route: 065
  20. CALCIUM 500 +D [Concomitant]
     Route: 065
  21. SENNA [Concomitant]
     Route: 065
  22. TOPAMAX [Concomitant]
     Route: 065
  23. OXYCONTIN [Concomitant]
     Route: 065
  24. SODIUM CITRATE DIHYDRATE [Concomitant]
     Route: 065
  25. DECADRON [Concomitant]
     Dosage: 40 MILLIGRAM
     Route: 065
     Dates: start: 20110120
  26. ZOLOFT [Concomitant]
     Route: 065
  27. CLARITIN [Concomitant]
     Route: 065
  28. COUMADIN [Concomitant]
     Route: 065
  29. OXYCODONE HCL [Concomitant]
     Route: 065

REACTIONS (3)
  - PANCYTOPENIA [None]
  - DEATH [None]
  - NO THERAPEUTIC RESPONSE [None]
